FAERS Safety Report 10216827 (Version 1)
Quarter: 2014Q2

REPORT INFORMATION
  Report Type: Spontaneous
  Country: US (occurrence: US)
  Receive Date: 20140604
  Receipt Date: 20140604
  Transmission Date: 20141212
  Serious: Yes (Other)
  Sender: FDA-Public Use
  Company Number: US-GE HEALTHCARE MEDICAL DIAGNOSTICS-OSCN-PR-1405S-0107

PATIENT
  Age: 74 Year
  Sex: Female

DRUGS (2)
  1. OMNISCAN [Suspect]
     Indication: MASS
     Route: 042
     Dates: start: 20140515, end: 20140515
  2. OMNISCAN [Suspect]
     Indication: DIAGNOSTIC PROCEDURE

REACTIONS (4)
  - Sneezing [Unknown]
  - Cough [Unknown]
  - Dysphonia [Unknown]
  - Dizziness [Unknown]
